FAERS Safety Report 6878489-8 (Version None)
Quarter: 2010Q2

REPORT INFORMATION
  Report Type: 
  Country: None (occurrence: None)
  Receive Date: 20100624
  Receipt Date: 20100330
  Transmission Date: 20101027
  Serious: No
  Sender: FDA-Public Use
  Company Number: DKLU1060239

PATIENT
  Age: 10 Year
  Sex: Male

DRUGS (1)
  1. SABRIL [Suspect]
     Indication: DRUG USE FOR UNKNOWN INDICATION
     Dates: start: 20100110

REACTIONS (3)
  - AGGRESSION [None]
  - HEAD BANGING [None]
  - IRRITABILITY [None]
